FAERS Safety Report 10511098 (Version 1)
Quarter: 2014Q4

REPORT INFORMATION
  Report Type: Spontaneous
  Country: US (occurrence: None)
  Receive Date: 20141009
  Receipt Date: 20141009
  Transmission Date: 20150528
  Serious: Yes (Hospitalization)
  Sender: FDA-Public Use
  Company Number: None

PATIENT
  Age: 49 Year
  Sex: Female

DRUGS (1)
  1. SOVALDI [Suspect]
     Active Substance: SOFOSBUVIR
     Indication: HEPATITIS C
     Dosage: SOVALDI  400 MG TAB  ONCE DAILY  ORAL
     Route: 048
     Dates: start: 20140929, end: 20141002

REACTIONS (3)
  - Bronchitis [None]
  - Dehydration [None]
  - Pyrexia [None]

NARRATIVE: CASE EVENT DATE: 20141002
